FAERS Safety Report 13162021 (Version 2)
Quarter: 2017Q1

REPORT INFORMATION
  Report Type: Spontaneous
  Country: US (occurrence: US)
  Receive Date: 20170130
  Receipt Date: 20170309
  Transmission Date: 20170428
  Serious: No
  Sender: FDA-Public Use
  Company Number: US-PFIZER INC-2017035943

PATIENT
  Sex: Male

DRUGS (1)
  1. METHYLPREDNISOLONE. [Suspect]
     Active Substance: METHYLPREDNISOLONE
     Dosage: 4 MG, UNK
     Route: 048

REACTIONS (7)
  - Dysphagia [Unknown]
  - Underdose [Unknown]
  - Product label issue [Unknown]
  - Product taste abnormal [Unknown]
  - Product physical issue [Unknown]
  - Dysgeusia [Unknown]
  - Incorrect route of drug administration [Unknown]
